FAERS Safety Report 17415355 (Version 1)
Quarter: 2020Q1

REPORT INFORMATION
  Report Type: Spontaneous
  Country: US (occurrence: US)
  Receive Date: 20200213
  Receipt Date: 20200213
  Transmission Date: 20200409
  Serious: No
  Sender: FDA-Public Use
  Company Number: US-BAYER-2020-026140

PATIENT
  Age: 85 Year
  Sex: Female

DRUGS (1)
  1. MIRALAX [Suspect]
     Active Substance: POLYETHYLENE GLYCOL 3350
     Dosage: DAILY OR EVERY OTHER DAY MIX IN APPLE JUICE
     Route: 048

REACTIONS (2)
  - Product use issue [Unknown]
  - Gastrointestinal disorder [Unknown]
